FAERS Safety Report 4745069-X (Version None)
Quarter: 2005Q3

REPORT INFORMATION
  Report Type: 
  Country: None (occurrence: None)
  Receive Date: 20050815
  Receipt Date: 20050706
  Transmission Date: 20060218
  Serious: Yes (Other)
  Sender: FDA-Public Use
  Company Number: 200515799US

PATIENT
  Sex: Male
  Weight: 133.6 kg

DRUGS (17)
  1. LANTUS [Suspect]
     Indication: DIABETES MELLITUS NON-INSULIN-DEPENDENT
     Dosage: DOSE UNIT: UNITS
     Route: 051
     Dates: start: 20040201
  2. OPTICLIK (INSULIN INJECTION PEN) [Suspect]
     Dates: start: 20040201
  3. NOVOLOG [Concomitant]
     Dosage: DOSE: SLIDING SCALE
     Route: 051
  4. LISINOPRIL [Concomitant]
     Route: 048
  5. NEURONTIN [Concomitant]
     Route: 048
  6. POTASSIUM CHLORIDE [Concomitant]
     Route: 048
  7. DETROL [Concomitant]
     Route: 048
  8. DILANTIN [Concomitant]
     Dosage: DOSE: UNKNOWN
  9. PHENOBARBITAL EX [Concomitant]
     Dosage: DOSE: UNKNOWN
  10. PLAVIX [Concomitant]
     Route: 048
  11. SSRI [Concomitant]
     Route: 048
  12. BUMETANIDE [Concomitant]
     Route: 048
  13. ZOCOR [Concomitant]
     Route: 048
  14. ACTOS [Concomitant]
     Route: 048
  15. TYLENOL (CAPLET) [Concomitant]
     Dosage: DOSE: UNKNOWN
  16. STARLIX [Concomitant]
     Route: 048
  17. DITROPAN [Concomitant]
     Dosage: DOSE: UNKNOWN
     Route: 048

REACTIONS (9)
  - BLOOD GLUCOSE FLUCTUATION [None]
  - BLOOD GLUCOSE INCREASED [None]
  - CONVULSION [None]
  - DEVICE FAILURE [None]
  - EPILEPSY [None]
  - HYPOGLYCAEMIA [None]
  - NERVOUSNESS [None]
  - PHARMACEUTICAL PRODUCT COMPLAINT [None]
  - STRESS [None]
